FAERS Safety Report 19165906 (Version 1)
Quarter: 2021Q2

REPORT INFORMATION
  Report Type: Spontaneous
  Country: CN (occurrence: CN)
  Receive Date: 20210422
  Receipt Date: 20210422
  Transmission Date: 20210717
  Serious: Yes (Life-Threatening)
  Sender: FDA-Public Use
  Company Number: CN-ASTRAZENECA-2021A316956

PATIENT
  Age: 32 Year
  Sex: Female
  Weight: 51 kg

DRUGS (9)
  1. BUDESONIDE. [Suspect]
     Active Substance: BUDESONIDE
     Indication: NEPHROLITHIASIS
     Route: 055
     Dates: start: 20210308, end: 20210308
  2. GLUCOSE INJECTION [Concomitant]
     Active Substance: DEXTROSE
  3. POTASSIUM CHLORIDE INJECTION [Concomitant]
     Active Substance: POTASSIUM CHLORIDE
     Route: 041
  4. BRICANYL [Suspect]
     Active Substance: TERBUTALINE SULFATE
     Indication: INFECTION
     Route: 055
     Dates: start: 20210308, end: 20210308
  5. GLUCOSE INJECTION [Concomitant]
     Active Substance: DEXTROSE
     Route: 042
  6. BUDESONIDE. [Suspect]
     Active Substance: BUDESONIDE
     Indication: INFECTION
     Route: 055
     Dates: start: 20210308, end: 20210308
  7. POTASSIUM CHLORIDE INJECTION [Concomitant]
     Active Substance: POTASSIUM CHLORIDE
     Route: 041
  8. BRICANYL [Suspect]
     Active Substance: TERBUTALINE SULFATE
     Indication: NEPHROLITHIASIS
     Route: 055
     Dates: start: 20210308, end: 20210308
  9. NOREPINEPHRINE BITARTRATE. [Concomitant]
     Active Substance: NOREPINEPHRINE BITARTRATE

REACTIONS (3)
  - Palpitations [Recovered/Resolved]
  - Blood pressure decreased [Recovered/Resolved]
  - Arrhythmia [Recovered/Resolved]

NARRATIVE: CASE EVENT DATE: 20210308
